FAERS Safety Report 8217313-8 (Version None)
Quarter: 2012Q1

REPORT INFORMATION
  Report Type: 
  Country: None (occurrence: None)
  Receive Date: 20120315
  Receipt Date: 20120217
  Transmission Date: 20120608
  Serious: No
  Sender: FDA-Public Use
  Company Number: ADR-UNK-035

PATIENT
  Age: 280 Day
  Sex: Female
  Weight: 3.42 kg

DRUGS (3)
  1. EMTRICITABINE [Concomitant]
  2. TENOFOVIR DISOPROXIL FUMARATE [Concomitant]
  3. EFAVIRENZ [Suspect]
     Indication: ACQUIRED IMMUNODEFICIENCY SYNDROME
     Dosage: 600 MG/DAY; ORAL
     Route: 048
     Dates: start: 20081002

REACTIONS (1)
  - POLYDACTYLY [None]
